FAERS Safety Report 15207296 (Version 1)
Quarter: 2018Q3

REPORT INFORMATION
  Report Type: Report from Study
  Country: None (occurrence: FR)
  Receive Date: 20180727
  Receipt Date: 20180727
  Transmission Date: 20181010
  Serious: Yes (Congenital Anomaly)
  Sender: FDA-Public Use
  Company Number: FR-ABBVIE-18S-056-2429362-00

PATIENT
  Sex: Male

DRUGS (8)
  1. REYATAZ [Suspect]
     Active Substance: ATAZANAVIR SULFATE
     Indication: MATERNAL EXPOSURE TIMING UNSPECIFIED
     Route: 064
  2. TENOFOVIR DISOPROXIL FUMARATE/EMTRICITABINE [Suspect]
     Active Substance: EMTRICITABINE\TENOFOVIR DISOPROXIL FUMARATE
     Indication: MATERNAL EXPOSURE TIMING UNSPECIFIED
     Route: 064
  3. TENOFOVIR DISOPROXIL FUMARATE/EMTRICITABINE [Suspect]
     Active Substance: EMTRICITABINE\TENOFOVIR DISOPROXIL FUMARATE
     Route: 064
  4. RITONAVIR. [Suspect]
     Active Substance: RITONAVIR
     Indication: MATERNAL EXPOSURE TIMING UNSPECIFIED
  5. TENOFOVIR DISOPROXIL FUMARATE/EMTRICITABINE [Suspect]
     Active Substance: EMTRICITABINE\TENOFOVIR DISOPROXIL FUMARATE
     Route: 064
  6. RITONAVIR. [Suspect]
     Active Substance: RITONAVIR
     Indication: MATERNAL EXPOSURE TIMING UNSPECIFIED
  7. TENOFOVIR DISOPROXIL FUMARATE/EMTRICITABINE [Suspect]
     Active Substance: EMTRICITABINE\TENOFOVIR DISOPROXIL FUMARATE
     Route: 064
  8. RITONAVIR. [Suspect]
     Active Substance: RITONAVIR
     Indication: MATERNAL EXPOSURE TIMING UNSPECIFIED
     Route: 064

REACTIONS (11)
  - Foetal exposure during pregnancy [Unknown]
  - Pulmonary malformation [Unknown]
  - Transposition of the great vessels [Unknown]
  - Single umbilical artery [Unknown]
  - Anomalous pulmonary venous connection [Unknown]
  - Persistent left superior vena cava [Unknown]
  - Ventricular hypoplasia [Unknown]
  - Ventricular septal defect [Unknown]
  - Congenital arterial malformation [Unknown]
  - Heterotaxia [Unknown]
  - Right aortic arch [Unknown]
